FAERS Safety Report 6818284-9 (Version None)
Quarter: 2010Q3

REPORT INFORMATION
  Report Type: 
  Country: None (occurrence: None)
  Receive Date: 20100706
  Receipt Date: 20070828
  Transmission Date: 20110219
  Serious: No
  Sender: FDA-Public Use
  Company Number: US-PFIZER INC-2007072189

PATIENT
  Sex: Male
  Weight: 47.3 kg

DRUGS (5)
  1. ZITHROMAX [Suspect]
     Indication: SINUSITIS
     Dates: start: 20070801
  2. ZITHROMAX [Suspect]
     Indication: RHINITIS ALLERGIC
  3. ALBUTEROL [Concomitant]
  4. CONCERTA [Concomitant]
     Indication: ATTENTION DEFICIT/HYPERACTIVITY DISORDER
  5. CLONIDINE [Concomitant]
     Indication: SLEEP DISORDER

REACTIONS (5)
  - AGEUSIA [None]
  - ANOSMIA [None]
  - EAR DISCOMFORT [None]
  - HYPOACUSIS [None]
  - NASAL DISCOMFORT [None]
